FAERS Safety Report 8886558 (Version 1)
Quarter: 2012Q4

REPORT INFORMATION
  Report Type: 
  Country: US (occurrence: US)
  Receive Date: 20121105
  Receipt Date: 20121105
  Transmission Date: 20130627
  Serious: No
  Sender: FDA-Public Use
  Company Number: PHEH2012US021665

PATIENT
  Sex: Female

DRUGS (10)
  1. TASIGNA [Suspect]
     Dosage: 2 DF, BID
     Route: 048
  2. ZOLOFT [Concomitant]
  3. SYNTHROID [Concomitant]
  4. VENTOLIN HFA [Concomitant]
  5. ADVAIR DISKUS [Concomitant]
  6. ZYRTEC [Concomitant]
  7. VITAMIN B 12 [Concomitant]
  8. CENTRUM SILVER [Concomitant]
  9. VITAMIN D [Concomitant]
  10. PREMPRO [Concomitant]

REACTIONS (3)
  - Fatigue [Unknown]
  - Dyspnoea [Unknown]
  - Malaise [Unknown]
